FAERS Safety Report 14186807 (Version 1)
Quarter: 2017Q4

REPORT INFORMATION
  Report Type: Spontaneous
  Country: US (occurrence: None)
  Receive Date: 20171112
  Receipt Date: 20171112
  Transmission Date: 20180321
  Serious: Yes (Other)
  Sender: FDA-Public Use
  Company Number: None

PATIENT
  Age: 16 Month
  Sex: Male

DRUGS (2)
  1. VIGABATRIN 500MG PAR PHARMACEUTICAL (OPERATING COMPANY OF ENDO INTERNATIONAL PLC) [Suspect]
     Active Substance: VIGABATRIN
     Indication: MUSCLE SPASMS
     Dosage: 1 PACKET IN 10ML OF WATER AND TWICE DAILY BY MOUTH
     Route: 048
     Dates: start: 20170202
  2. VIGABATRIN 500MG PAR PHARMACEUTICAL (OPERATING COMPANY OF ENDO INTERNATIONAL PLC) [Suspect]
     Active Substance: VIGABATRIN
     Indication: EPILEPSY
     Dosage: 1 PACKET IN 10ML OF WATER AND TWICE DAILY BY MOUTH
     Route: 048
     Dates: start: 20170202

REACTIONS (1)
  - Brain operation [None]

NARRATIVE: CASE EVENT DATE: 20170627
